FAERS Safety Report 5082916-9 (Version None)
Quarter: 2006Q3

REPORT INFORMATION
  Report Type: 
  Country: None (occurrence: None)
  Receive Date: 20060720
  Receipt Date: 20060427
  Transmission Date: 20061208
  Serious: Yes (Other)
  Sender: FDA-Public Use
  Company Number: 2006058047

PATIENT
  Sex: Male

DRUGS (2)
  1. CELEBREX [Suspect]
     Indication: PAIN
  2. ASPIRIN [Concomitant]

REACTIONS (3)
  - BLOOD URINE [None]
  - PAIN [None]
  - PROSTATIC DISORDER [None]
